FAERS Safety Report 8339099-9 (Version None)
Quarter: 2012Q2

REPORT INFORMATION
  Report Type: 
  Country: None (occurrence: None)
  Receive Date: 20120507
  Receipt Date: 20120430
  Transmission Date: 20120825
  Serious: No
  Sender: FDA-Public Use
  Company Number: US-PFIZER INC-2012068883

PATIENT
  Sex: Female

DRUGS (3)
  1. PREMARIN [Suspect]
     Indication: URETHRAL PROLAPSE
  2. SYNTHROID [Concomitant]
     Indication: HYPOTHYROIDISM
     Dosage: UNK
  3. PREMARIN [Suspect]
     Indication: OFF LABEL USE
     Dosage: UNK, 1X/DAY
     Route: 067
     Dates: start: 20120314, end: 20120314

REACTIONS (5)
  - BURNING SENSATION [None]
  - PRURITUS [None]
  - HYPERSENSITIVITY [None]
  - APPLICATION SITE IRRITATION [None]
  - ERYTHEMA [None]
